FAERS Safety Report 15897751 (Version 1)
Quarter: 2019Q1

REPORT INFORMATION
  Report Type: Spontaneous
  Country: US (occurrence: US)
  Receive Date: 20190201
  Receipt Date: 20190201
  Transmission Date: 20190417
  Serious: Yes (Other)
  Sender: FDA-Public Use
  Company Number: US-CIPLA LTD.-2019US00788

PATIENT

DRUGS (2)
  1. SERTRALINE [Suspect]
     Active Substance: SERTRALINE HYDROCHLORIDE
     Indication: DEPRESSION
  2. SERTRALINE [Suspect]
     Active Substance: SERTRALINE HYDROCHLORIDE
     Indication: ANXIETY
     Dosage: 250 MG, QD, (A TOTAL OF 3 TABLETS, 2 OF THE 100^S AND 1 OF THE 50^S)
     Route: 048

REACTIONS (5)
  - Panic attack [Recovered/Resolved]
  - Suicidal ideation [Recovered/Resolved]
  - Feeling abnormal [Recovered/Resolved]
  - Depression [Recovered/Resolved]
  - Emotional disorder [Recovered/Resolved]

NARRATIVE: CASE EVENT DATE: 201611
